FAERS Safety Report 10061819 (Version 1)
Quarter: 2014Q2

REPORT INFORMATION
  Report Type: Spontaneous
  Country: US (occurrence: US)
  Receive Date: 20140407
  Receipt Date: 20140407
  Transmission Date: 20141212
  Serious: No
  Sender: FDA-Public Use
  Company Number: US-BIOGENIDEC-2014BI030743

PATIENT
  Age: 39 Year
  Sex: Female

DRUGS (1)
  1. TYSABRI [Suspect]
     Indication: MULTIPLE SCLEROSIS
     Route: 042
     Dates: start: 20130725

REACTIONS (6)
  - Amenorrhoea [Recovered/Resolved]
  - Breast pain [Recovered/Resolved]
  - Menstrual disorder [Recovered/Resolved]
  - Menorrhagia [Recovered/Resolved]
  - Metrorrhagia [Recovered/Resolved]
  - Multiple sclerosis relapse [Recovered/Resolved]
